FAERS Safety Report 10758954 (Version 1)
Quarter: 2015Q1

REPORT INFORMATION
  Report Type: Report from Study
  Country: US (occurrence: US)
  Receive Date: 20150203
  Receipt Date: 20150203
  Transmission Date: 20150721
  Serious: Yes (Hospitalization)
  Sender: FDA-Public Use
  Company Number: US-SA-2015SA012628

PATIENT
  Sex: Female

DRUGS (1)
  1. LANTUS [Suspect]
     Active Substance: INSULIN GLARGINE
     Indication: DIABETES MELLITUS
     Dosage: DOSE 40 UNITS MORNING AND 35 UNITS EVENING
     Route: 065
     Dates: start: 2006

REACTIONS (3)
  - Drug administration error [Unknown]
  - Diabetic ketoacidosis [Unknown]
  - Intervertebral disc protrusion [Unknown]
